FAERS Safety Report 5659933-0 (Version None)
Quarter: 2008Q1

REPORT INFORMATION
  Report Type: 
  Country: None (occurrence: None)
  Receive Date: 20080311
  Receipt Date: 20071204
  Transmission Date: 20080703
  Serious: Yes (Hospitalization)
  Sender: FDA-Public Use
  Company Number: US-BAYER-200712621BCC

PATIENT
  Age: 71 Year
  Sex: Female
  Weight: 76 kg

DRUGS (4)
  1. ALEVE [Suspect]
     Indication: POLYARTHRITIS
     Dosage: TOTAL DAILY DOSE: 220 MG  UNIT DOSE: 220 MG
     Route: 048
     Dates: start: 20070814
  2. ATENOLOL [Concomitant]
     Dates: start: 19970101
  3. VITAMIN B SUPPLEMENT [Concomitant]
  4. OMEGA 3 SUPPLEMENT [Concomitant]

REACTIONS (6)
  - DIZZINESS [None]
  - HAEMATOCHEZIA [None]
  - MUSCLE SPASMS [None]
  - PRESYNCOPE [None]
  - PRURITUS [None]
  - RASH ERYTHEMATOUS [None]
